FAERS Safety Report 7834036-5 (Version None)
Quarter: 2011Q4

REPORT INFORMATION
  Report Type: 
  Country: None (occurrence: None)
  Receive Date: 20111024
  Receipt Date: 20111024
  Transmission Date: 20120403
  Serious: Yes (Hospitalization)
  Sender: FDA-Public Use
  Company Number: None

PATIENT
  Age: 70 Year
  Sex: Male
  Weight: 63.8 kg

DRUGS (1)
  1. PLAVIX [Suspect]
     Indication: CORONARY ARTERY BYPASS
     Dates: start: 20111008, end: 20111021

REACTIONS (1)
  - DYSPNOEA [None]
